FAERS Safety Report 22165788 (Version 1)
Quarter: 2023Q2

REPORT INFORMATION
  Report Type: Spontaneous
  Country: US (occurrence: US)
  Receive Date: 20230403
  Receipt Date: 20230403
  Transmission Date: 20230722
  Serious: Yes (Other)
  Sender: FDA-Public Use
  Company Number: US-AMGEN-USASP2023055680

PATIENT
  Age: 66 Year
  Sex: Male

DRUGS (2)
  1. VECTIBIX [Suspect]
     Active Substance: PANITUMUMAB
     Indication: Colon cancer
     Dosage: 600 MILLIGRAM
     Route: 065
     Dates: start: 20210817
  2. VECTIBIX [Suspect]
     Active Substance: PANITUMUMAB
     Dosage: 600 MILLIGRAM
     Route: 065
     Dates: start: 20230327

REACTIONS (2)
  - Cellulitis [Recovered/Resolved]
  - Rash [Recovered/Resolved]

NARRATIVE: CASE EVENT DATE: 20230313
